FAERS Safety Report 14319038 (Version 5)
Quarter: 2019Q1

REPORT INFORMATION
  Report Type: Report from Study
  Country: US (occurrence: US)
  Receive Date: 20171222
  Receipt Date: 20190305
  Transmission Date: 20190417
  Serious: Yes (Death, Hospitalization)
  Sender: FDA-Public Use
  Company Number: US-ACTELION-A-NJ2017-164479

PATIENT
  Age: 72 Year
  Sex: Female
  Weight: 74.83 kg

DRUGS (2)
  1. OPSUMIT [Suspect]
     Active Substance: MACITENTAN
     Indication: PULMONARY ARTERIAL HYPERTENSION
     Dosage: 10 MG, QD
     Route: 048
  2. SILDENAFIL CITRATE. [Concomitant]
     Active Substance: SILDENAFIL CITRATE

REACTIONS (8)
  - Cardiac failure [Unknown]
  - Renal impairment [Unknown]
  - Oedema [Unknown]
  - Dialysis [Unknown]
  - Pulmonary arterial hypertension [Fatal]
  - Atrial fibrillation [Unknown]
  - Condition aggravated [Fatal]
  - Cardiac output decreased [Fatal]

NARRATIVE: CASE EVENT DATE: 20190122
